FAERS Safety Report 10086262 (Version 1)
Quarter: 2014Q2

REPORT INFORMATION
  Report Type: Spontaneous
  Country: US (occurrence: US)
  Receive Date: 20140418
  Receipt Date: 20140418
  Transmission Date: 20141212
  Serious: No
  Sender: FDA-Public Use
  Company Number: US-ENDO PHARMACEUTICALS INC.-DIAZ20140005

PATIENT
  Sex: Female

DRUGS (6)
  1. DIAZEPAM 5MG [Suspect]
     Indication: ANXIETY
     Route: 048
     Dates: end: 20140215
  2. DIAZEPAM 5MG [Suspect]
     Indication: DEPRESSION
  3. AGGRENOX [Concomitant]
     Indication: PRODUCT USED FOR UNKNOWN INDICATION
     Dosage: UNKNOWN
     Route: 065
  4. ACIPHEX [Concomitant]
     Indication: PRODUCT USED FOR UNKNOWN INDICATION
     Dosage: UNKNOWN
     Route: 065
  5. BEPREVE [Concomitant]
     Indication: RHINITIS ALLERGIC
     Dosage: UNKNOWN
     Route: 047
  6. NASAL SPRAY [Concomitant]
     Indication: RHINITIS ALLERGIC
     Dosage: UNKNOWN
     Route: 045

REACTIONS (4)
  - Swelling face [Unknown]
  - Ocular hyperaemia [Unknown]
  - Eye pruritus [Unknown]
  - Throat tightness [Unknown]
